FAERS Safety Report 8971249 (Version 2)
Quarter: 2013Q1

REPORT INFORMATION
  Report Type: Spontaneous
  Country: US (occurrence: US)
  Receive Date: 20121218
  Receipt Date: 20130219
  Transmission Date: 20140127
  Serious: Yes (Other)
  Sender: FDA-Public Use
  Company Number: US-BAYER-2012-131148

PATIENT
  Age: 53 Year
  Sex: Female
  Weight: 102.4 kg

DRUGS (6)
  1. ALEVE CAPLET/TABLET,MIDOL EXTENDED RELIEF CAPLET [Suspect]
     Dosage: 220 MG, BID
  2. ALEVE CAPLET/TABLET,MIDOL EXTENDED RELIEF CAPLET [Suspect]
     Dosage: 500 MG, BID
  3. NEURONTIN [Suspect]
     Indication: NEURALGIA
     Dosage: UNK UNK, BID
     Route: 048
  4. ACETAMINOPHEN W/HYDROCODONE BITARTRATE [Suspect]
     Dosage: 500 MG, PRN
  5. SYNTHROID [Concomitant]
     Indication: THYROID DISORDER
     Dosage: 12.5 ?G, QD
  6. GABAPENTIN [Concomitant]

REACTIONS (5)
  - Fall [None]
  - Rotator cuff syndrome [None]
  - Rotator cuff syndrome [None]
  - Drug ineffective [None]
  - Incorrect dose administered [None]
